FAERS Safety Report 20297250 (Version 1)
Quarter: 2022Q1

REPORT INFORMATION
  Report Type: Spontaneous
  Country: FR (occurrence: FR)
  Receive Date: 20220105
  Receipt Date: 20220105
  Transmission Date: 20220424
  Serious: Yes (Hospitalization, Other)
  Sender: FDA-Public Use
  Company Number: FR-AFSSAPS-TO20219590

PATIENT
  Age: 72 Year
  Sex: Female
  Weight: 58.2 kg

DRUGS (2)
  1. ALFACALCIDOL [Suspect]
     Active Substance: ALFACALCIDOL
     Indication: Post procedural hypoparathyroidism
     Dosage: 2 MICROGRAM, ONCE A DAY(2 MICROGRAMMES/J)
     Route: 048
     Dates: start: 1991
  2. IRBESARTAN [Suspect]
     Active Substance: IRBESARTAN
     Indication: Hypertension
     Dosage: 150 MILLIGRAM, ONCE A DAY(150MG / D, LONG TERM)
     Route: 048
     Dates: end: 20210317

REACTIONS (2)
  - Prerenal failure [Recovered/Resolved]
  - Hypercalcaemia [Recovered/Resolved]

NARRATIVE: CASE EVENT DATE: 20210301
